FAERS Safety Report 8581327 (Version 2)
Quarter: 2012Q4

REPORT INFORMATION
  Report Type: Report from Study
  Country: JP (occurrence: JP)
  Receive Date: 20120525
  Receipt Date: 20121228
  Transmission Date: 20130627
  Serious: Yes (Other)
  Sender: FDA-Public Use
  Company Number: JP-VERTEX PHARMACEUTICALS INC.-AE-2012-007601

PATIENT
  Age: 48 Year
  Sex: Male

DRUGS (5)
  1. VX-950 (TELAPREVIR) [Suspect]
     Indication: CHRONIC HEPATITIS C
     Dosage: 2250 mg, qd
     Route: 048
     Dates: start: 20120316, end: 20120317
  2. RIBAVIRIN [Suspect]
     Indication: CHRONIC HEPATITIS C
     Dosage: 600 mg, qd
     Route: 048
     Dates: start: 20120316
  3. PEGINTERFERON ALFA-2B [Suspect]
     Indication: CHRONIC HEPATITIS C
     Dosage: 1.05 ?g/kg, qw
     Route: 058
     Dates: start: 20120316
  4. LOXONIN [Concomitant]
     Dosage: 60 mg/ day, prn
     Route: 048
     Dates: start: 20120316, end: 20120330
  5. MUCOSTA [Concomitant]
     Dosage: 100 mg/ day, prn
     Route: 048
     Dates: start: 20120316, end: 20120330

REACTIONS (1)
  - Rash [Recovered/Resolved]
